FAERS Safety Report 14502751 (Version 1)
Quarter: 2018Q1

REPORT INFORMATION
  Report Type: Spontaneous
  Country: US (occurrence: US)
  Receive Date: 20180206
  Receipt Date: 20180206
  Transmission Date: 20180509
  Serious: Yes (Life-Threatening, Hospitalization)
  Sender: FDA-Public Use
  Company Number: None

PATIENT
  Age: 77 Year
  Sex: Male
  Weight: 65 kg

DRUGS (1)
  1. ISONIAZID. [Suspect]
     Active Substance: ISONIAZID
     Indication: LATENT TUBERCULOSIS
     Route: 048
     Dates: start: 20160610, end: 20160726

REACTIONS (5)
  - International normalised ratio abnormal [None]
  - Jaundice [None]
  - Constipation [None]
  - Hepatic enzyme increased [None]
  - Hepatic enzyme abnormal [None]

NARRATIVE: CASE EVENT DATE: 20160725
